FAERS Safety Report 10465471 (Version 2)
Quarter: 2014Q4

REPORT INFORMATION
  Report Type: Report from Study
  Country: US (occurrence: US)
  Receive Date: 20140919
  Receipt Date: 20141016
  Transmission Date: 20150528
  Serious: Yes (Death, Hospitalization, Other)
  Sender: FDA-Public Use
  Company Number: US-GILEAD-2014-0115500

PATIENT
  Age: 88 Year
  Sex: Male

DRUGS (1)
  1. IDELALISIB [Suspect]
     Active Substance: IDELALISIB
     Indication: LYMPHOMA
     Dosage: 150 MG, UNK
     Route: 048
     Dates: start: 20140819, end: 20140909

REACTIONS (4)
  - Brain mass [Fatal]
  - Lip swelling [Fatal]
  - Pharyngeal ulceration [Fatal]
  - Tremor [Fatal]

NARRATIVE: CASE EVENT DATE: 2014
